FAERS Safety Report 20805124 (Version 2)
Quarter: 2022Q2

REPORT INFORMATION
  Report Type: Report from Study
  Country: US (occurrence: US)
  Receive Date: 20220509
  Receipt Date: 20220622
  Transmission Date: 20220721
  Serious: Yes (Hospitalization)
  Sender: FDA-Public Use
  Company Number: US-GW PHARMA-202203USGW01348

PATIENT
  Age: 43 Year
  Sex: Male
  Weight: 101 kg

DRUGS (1)
  1. EPIDIOLEX [Suspect]
     Active Substance: CANNABIDIOL
     Indication: Product used for unknown indication
     Dosage: 10 MILLILITER, BID
     Route: 048

REACTIONS (2)
  - Neuroprosthesis implantation [Unknown]
  - Seizure [Unknown]

NARRATIVE: CASE EVENT DATE: 20220301
